FAERS Safety Report 9679411 (Version 1)
Quarter: 2013Q4

REPORT INFORMATION
  Report Type: Spontaneous
  Country: US (occurrence: US)
  Receive Date: 20131109
  Receipt Date: 20131109
  Transmission Date: 20140711
  Serious: No
  Sender: FDA-Public Use
  Company Number: US-SANOFI-AVENTIS-2013SA041337

PATIENT
  Age: 20 Year
  Sex: Male

DRUGS (6)
  1. ALLEGRA-D [Suspect]
     Indication: HYPERSENSITIVITY
     Dosage: TAKEN FROM-5 YEARS FREQUENCY-1-3 DAILY
     Route: 065
  2. AMOXICILLIN [Concomitant]
     Indication: LOWER RESPIRATORY TRACT INFECTION
  3. PREDNISONE [Concomitant]
     Indication: LOWER RESPIRATORY TRACT INFECTION
  4. PRO-AIR [Concomitant]
     Indication: LOWER RESPIRATORY TRACT INFECTION
  5. FLUTICASONE [Concomitant]
  6. LEVOCETIRIZINE [Concomitant]

REACTIONS (7)
  - Drug withdrawal syndrome [Unknown]
  - Anxiety [Unknown]
  - Insomnia [Unknown]
  - Tremor [Unknown]
  - Paraesthesia [Unknown]
  - Feeling abnormal [Unknown]
  - Extra dose administered [Unknown]
